FAERS Safety Report 5522623-9 (Version None)
Quarter: 2007Q4

REPORT INFORMATION
  Report Type: 
  Country: None (occurrence: None)
  Receive Date: 20071120
  Receipt Date: 20071113
  Transmission Date: 20080405
  Serious: Yes (Other)
  Sender: FDA-Public Use
  Company Number: DE-SHR-DE-2007-043055

PATIENT
  Age: 41 Year
  Sex: Female
  Weight: 68 kg

DRUGS (2)
  1. MIRENA [Suspect]
     Dosage: 20 A?G/DAY, CONT
     Route: 036
     Dates: start: 20010101, end: 20070101
  2. MIRENA [Suspect]
     Dosage: 20 A?G/DAY, CONT
     Route: 015
     Dates: start: 20070901, end: 20071008

REACTIONS (10)
  - ABDOMINAL PAIN LOWER [None]
  - ALOPECIA [None]
  - ANXIETY [None]
  - DEPRESSION [None]
  - HIRSUTISM [None]
  - HYPERVENTILATION [None]
  - PANIC ATTACK [None]
  - PREMENSTRUAL SYNDROME [None]
  - TACHYCARDIA [None]
  - WEIGHT DECREASED [None]
